FAERS Safety Report 6845868-4 (Version None)
Quarter: 2010Q3

REPORT INFORMATION
  Report Type: 
  Country: None (occurrence: None)
  Receive Date: 20100715
  Receipt Date: 20071126
  Transmission Date: 20110219
  Serious: No
  Sender: FDA-Public Use
  Company Number: US-PFIZER INC-2007071570

PATIENT
  Sex: Female
  Weight: 67.3 kg

DRUGS (1)
  1. CHANTIX [Suspect]
     Indication: SMOKING CESSATION THERAPY
     Dates: start: 20070701

REACTIONS (5)
  - ABDOMINAL DISCOMFORT [None]
  - CONFUSIONAL STATE [None]
  - CONSTIPATION [None]
  - INCORRECT DOSE ADMINISTERED [None]
  - NAUSEA [None]
